FAERS Safety Report 5280208-6 (Version None)
Quarter: 2007Q1

REPORT INFORMATION
  Report Type: 
  Country: None (occurrence: None)
  Receive Date: 20070329
  Receipt Date: 20070320
  Transmission Date: 20070707
  Serious: Yes (Hospitalization)
  Sender: FDA-Public Use
  Company Number: FR-ROCHE-481798

PATIENT
  Age: 59 Year
  Sex: Male
  Weight: 60 kg

DRUGS (12)
  1. ENFUVIRTIDE [Suspect]
     Route: 065
     Dates: start: 20060831
  2. TRUVADA [Suspect]
     Route: 065
     Dates: start: 20060831
  3. SUSTIVA [Suspect]
     Dosage: ONE TABLET DAILY.
     Route: 065
     Dates: start: 20060831
  4. RIFATER [Concomitant]
     Dates: start: 20060728
  5. MYAMBUTOL [Concomitant]
     Dates: start: 20060728
  6. ZECLAR [Concomitant]
     Dosage: THE TDD WAS AUGMENTED TO 1000 MG ON AN UNSPECIFIED DATE.
     Dates: start: 20060728
  7. CORTANCYL [Concomitant]
     Dates: start: 20060810
  8. RIFINAH [Concomitant]
     Dates: start: 20060615
  9. BACTRIM [Concomitant]
     Dates: start: 20060715
  10. VALACYCLOVIR HCL [Concomitant]
     Dates: start: 20060715
  11. TRIFLUCAN [Concomitant]
     Dates: start: 20060715
  12. XANAX [Concomitant]

REACTIONS (1)
  - LYMPHADENITIS [None]
